FAERS Safety Report 9476824 (Version 2)
Quarter: 2013Q3

REPORT INFORMATION
  Report Type: Spontaneous
  Country: FR (occurrence: FR)
  Receive Date: 20130826
  Receipt Date: 20130903
  Transmission Date: 20140515
  Serious: Yes (Hospitalization, Other)
  Sender: FDA-Public Use
  Company Number: FR-ASTRAZENECA-2013SE64648

PATIENT
  Age: 20630 Day
  Sex: Female

DRUGS (14)
  1. INEXIUM [Suspect]
     Route: 048
     Dates: start: 201111
  2. FLAGYL [Suspect]
     Route: 065
  3. FLAGYL [Suspect]
     Route: 065
     Dates: start: 201111
  4. OMNIPAQUE [Suspect]
     Route: 065
     Dates: start: 20111116
  5. OMNIPAQUE [Suspect]
     Route: 065
     Dates: start: 20111209
  6. OMNIPAQUE [Suspect]
     Route: 065
     Dates: start: 20111230
  7. TIENAM [Suspect]
     Route: 065
     Dates: start: 20111110
  8. TIENAM [Suspect]
     Route: 065
  9. ROCEPHINE [Suspect]
     Route: 065
     Dates: start: 201111
  10. ROVAMYCINE [Suspect]
     Route: 065
     Dates: start: 201111
  11. CIFLOX [Suspect]
     Route: 065
     Dates: start: 20111110
  12. AMIKACINE [Suspect]
     Route: 065
     Dates: start: 201111
  13. ERYTHROCINE [Suspect]
     Route: 065
     Dates: start: 201111
  14. EUPANTOL [Concomitant]

REACTIONS (2)
  - Drug reaction with eosinophilia and systemic symptoms [Recovered/Resolved]
  - Toxic skin eruption [Unknown]
